FAERS Safety Report 6113157-1 (Version None)
Quarter: 2009Q1

REPORT INFORMATION
  Report Type: 
  Country: None (occurrence: None)
  Receive Date: 20090312
  Receipt Date: 20090303
  Transmission Date: 20090719
  Serious: Yes (Death, Hospitalization)
  Sender: FDA-Public Use
  Company Number: FR-WYE-G03245209

PATIENT
  Age: 52 Year
  Sex: Male
  Weight: 105 kg

DRUGS (3)
  1. TYGACIL [Suspect]
     Indication: PERITONITIS
     Route: 042
     Dates: start: 20081013, end: 20081018
  2. TYGACIL [Suspect]
     Indication: DERMO-HYPODERMITIS
  3. DOBUTREX [Concomitant]
     Indication: CARDIOGENIC SHOCK
     Dosage: 4 G/KG/MIN
     Route: 042
     Dates: start: 20081008

REACTIONS (3)
  - CARDIOGENIC SHOCK [None]
  - CONDITION AGGRAVATED [None]
  - DRUG INEFFECTIVE [None]
